FAERS Safety Report 4886617-9 (Version None)
Quarter: 2005Q4

REPORT INFORMATION
  Report Type: 
  Country: None (occurrence: None)
  Receive Date: 20051220
  Receipt Date: 20050620
  Transmission Date: 20060501
  Serious: Yes (Other)
  Sender: FDA-Public Use
  Company Number: HQWYE598321JUN05

PATIENT
  Age: 50 Year
  Sex: Female

DRUGS (1)
  1. EFFEXOR XR [Suspect]
     Dosage: 150 MG 1X PER 1 DAY
     Dates: start: 20040812, end: 20050617

REACTIONS (1)
  - CONVULSION [None]
